FAERS Safety Report 7016922-1 (Version None)
Quarter: 2010Q3

REPORT INFORMATION
  Report Type: 
  Country: None (occurrence: None)
  Receive Date: 20100927
  Receipt Date: 20100915
  Transmission Date: 20110219
  Serious: Yes (Other)
  Sender: FDA-Public Use
  Company Number: FR-PFIZER INC-2010120898

PATIENT
  Age: 19 Year
  Sex: Female

DRUGS (6)
  1. VFEND [Suspect]
  2. SOLU-MEDROL [Suspect]
  3. CYCLOSPORINE [Suspect]
  4. ACUPAN [Suspect]
  5. BACTRIM [Suspect]
  6. MOPRAL [Suspect]

REACTIONS (2)
  - CARDIAC ARREST [None]
  - RESPIRATORY ARREST [None]
